FAERS Safety Report 24242247 (Version 1)
Quarter: 2024Q3

REPORT INFORMATION
  Report Type: Spontaneous
  Country: US (occurrence: US)
  Receive Date: 20240823
  Receipt Date: 20240823
  Transmission Date: 20241017
  Serious: No
  Sender: Apozeal Pharmaceuticals
  Company Number: US-Apozeal Pharmaceuticals-2160789

PATIENT
  Sex: Female

DRUGS (4)
  1. LACTULOSE [Suspect]
     Active Substance: LACTULOSE
     Indication: Constipation
     Route: 065
  2. NeoSure [Concomitant]
     Route: 065
  3. NUTRAMIGEN [Concomitant]
     Active Substance: AMINO ACIDS
     Route: 065
  4. ENFACARE [Concomitant]
     Route: 065

REACTIONS (2)
  - Vomiting [Unknown]
  - Drug ineffective for unapproved indication [Unknown]
